FAERS Safety Report 9375356 (Version 1)
Quarter: 2013Q2

REPORT INFORMATION
  Report Type: Spontaneous
  Country: DK (occurrence: DK)
  Receive Date: 20130628
  Receipt Date: 20130628
  Transmission Date: 20140414
  Serious: Yes (Hospitalization, Other)
  Sender: FDA-Public Use
  Company Number: DK-CELGENEUS-044-21660-13063001

PATIENT
  Age: 32 Year
  Sex: Female

DRUGS (13)
  1. ABRAXANE [Suspect]
     Indication: BREAST CANCER
     Dosage: DAY 3 OF 21 DAY CYCLE
     Route: 041
     Dates: start: 20130109
  2. CARBOPLATIN [Suspect]
     Indication: BREAST CANCER
     Dosage: DAY 3 OF 21 DAY CYCLE
     Route: 041
     Dates: start: 20130109
  3. ABT-888 [Suspect]
     Indication: BREAST CANCER
     Route: 048
     Dates: start: 20130107
  4. PARACETAMOL [Concomitant]
     Indication: MUSCULOSKELETAL PAIN
     Dosage: 3 GRAM
     Route: 065
     Dates: start: 20121210, end: 20130401
  5. IBUPROFEN [Concomitant]
     Indication: MUSCULOSKELETAL PAIN
     Dosage: 1200 MILLIGRAM
     Route: 065
     Dates: start: 20121210, end: 20130401
  6. CLEMASTINE [Concomitant]
     Indication: PROPHYLAXIS
     Route: 065
     Dates: start: 20120109
  7. CLEMASTINE [Concomitant]
     Route: 065
     Dates: start: 20120130, end: 20120130
  8. CLEMASTINE [Concomitant]
     Route: 065
     Dates: start: 20130130, end: 20130130
  9. RANITIDINE [Concomitant]
     Indication: PROPHYLAXIS
     Route: 065
     Dates: start: 20120109
  10. METHYLPREDNISOLONE SODIUM SUCCINATE [Concomitant]
     Indication: PROPHYLAXIS
     Route: 065
     Dates: start: 20120109
  11. ONDANSETRON [Concomitant]
     Indication: PROPHYLAXIS OF NAUSEA AND VOMITING
     Route: 065
     Dates: start: 20130609
  12. CYKLOKAPRON [Concomitant]
     Indication: LYMPHADENOPATHY
     Dosage: 1500 MILLIGRAM
     Route: 065
     Dates: start: 20130123, end: 20130401
  13. CYKLOKAPRON [Concomitant]
     Indication: LYMPHADENOPATHY

REACTIONS (2)
  - Lymphadenopathy [Recovered/Resolved]
  - Febrile neutropenia [Recovered/Resolved]
